FAERS Safety Report 13143264 (Version 9)
Quarter: 2022Q1

REPORT INFORMATION
  Report Type: Spontaneous
  Country: FR (occurrence: FR)
  Receive Date: 20170124
  Receipt Date: 20220221
  Transmission Date: 20220423
  Serious: Yes (Hospitalization, Other)
  Sender: FDA-Public Use
  Company Number: FR-AFSSAPS-BX20161076

PATIENT
  Sex: Female
  Weight: 96 kg

DRUGS (7)
  1. LAMICTAL [Suspect]
     Active Substance: LAMOTRIGINE
     Indication: Depression
     Dosage: 1 DF(TABLET), Z 25 MG DAILY AT BEDTIME
     Route: 048
     Dates: start: 20160414, end: 20160524
  2. LAMICTAL [Suspect]
     Active Substance: LAMOTRIGINE
     Dosage: 100 MG, QD
     Route: 048
  3. LAMOTRIGINE [Suspect]
     Active Substance: LAMOTRIGINE
     Indication: Product used for unknown indication
     Dosage: 100 MG
     Route: 048
     Dates: start: 201605
  4. ALPRAZOLAM [Concomitant]
     Active Substance: ALPRAZOLAM
     Indication: Product used for unknown indication
     Dosage: 0.5 MG, UNK
     Route: 048
  5. LORMETAZEPAM [Concomitant]
     Active Substance: LORMETAZEPAM
     Indication: Product used for unknown indication
     Dosage: 2 MG, UNK
  6. XANAX [Concomitant]
     Active Substance: ALPRAZOLAM
     Indication: Product used for unknown indication
     Dosage: 0.5 MG, QD, 1 TO 4
  7. LORMETAZEPAM [Concomitant]
     Active Substance: LORMETAZEPAM
     Indication: Product used for unknown indication
     Dosage: UNK UNK, QD

REACTIONS (52)
  - Erythema multiforme [Recovered/Resolved with Sequelae]
  - Toxic skin eruption [Recovered/Resolved with Sequelae]
  - Stevens-Johnson syndrome [Recovered/Resolved with Sequelae]
  - Blindness [Unknown]
  - Punctate keratitis [Unknown]
  - Sjogren^s syndrome [Unknown]
  - Corneal operation [Unknown]
  - Eye disorder [Unknown]
  - Herpes virus infection [Unknown]
  - Odynophagia [Unknown]
  - Stomatitis [Unknown]
  - Entropion [Unknown]
  - Erythema multiforme [Unknown]
  - Symblepharon [Unknown]
  - Toxic epidermal necrolysis [Unknown]
  - Eye pain [Unknown]
  - Conjunctivitis [Recovering/Resolving]
  - Gingival pain [Unknown]
  - Oral disorder [Recovering/Resolving]
  - Blood blister [Recovering/Resolving]
  - Pharyngeal swelling [Unknown]
  - Mouth ulceration [Recovering/Resolving]
  - Dysphagia [Recovering/Resolving]
  - Eating disorder [Recovering/Resolving]
  - Photophobia [Not Recovered/Not Resolved]
  - Vision blurred [Not Recovered/Not Resolved]
  - Fibrosis [Not Recovered/Not Resolved]
  - Hyperthermia [Unknown]
  - Genital ulceration [Unknown]
  - Entropion [Recovered/Resolved]
  - Visual acuity reduced [Not Recovered/Not Resolved]
  - Mucosal disorder [Unknown]
  - Ligneous conjunctivitis [Unknown]
  - Tongue oedema [Unknown]
  - Fatigue [Unknown]
  - Skin burning sensation [Unknown]
  - Autonomic nervous system imbalance [Unknown]
  - Pain [Unknown]
  - Ophthalmic migraine [Unknown]
  - Food intolerance [Unknown]
  - Cheilitis [Recovering/Resolving]
  - Vulval ulceration [Unknown]
  - Lip erosion [Unknown]
  - Dry eye [Unknown]
  - Eye pruritus [Unknown]
  - Eye ulcer [Unknown]
  - Koebner phenomenon [Unknown]
  - Skin lesion [Unknown]
  - Ageusia [Unknown]
  - Noninfective gingivitis [Unknown]
  - Burning sensation mucosal [Unknown]
  - Mouth haemorrhage [Unknown]

NARRATIVE: CASE EVENT DATE: 20160101
